FAERS Safety Report 12211297 (Version 1)
Quarter: 2016Q1

REPORT INFORMATION
  Report Type: Spontaneous
  Country: NL (occurrence: NL)
  Receive Date: 20160325
  Receipt Date: 20160325
  Transmission Date: 20160526
  Serious: Yes (Other)
  Sender: FDA-Public Use
  Company Number: PHHY2016NL039587

PATIENT
  Sex: Female

DRUGS (5)
  1. AZATHIOPRINE. [Interacting]
     Active Substance: AZATHIOPRINE
     Indication: DERMATITIS ATOPIC
     Dosage: 50 MG, QD
     Route: 065
  2. PANTOPRAZOLE [Suspect]
     Active Substance: PANTOPRAZOLE SODIUM
     Indication: GASTROINTESTINAL DISORDER
     Dosage: 20 MG, QD
     Route: 065
  3. PREDNISOLON [Concomitant]
     Active Substance: PREDNISOLONE
     Indication: PRODUCT USED FOR UNKNOWN INDICATION
     Dosage: 20-30 MG, QD
     Route: 048
  4. AZATHIOPRINE. [Interacting]
     Active Substance: AZATHIOPRINE
     Indication: ECZEMA
     Dosage: 100 MG, QD
     Route: 065
  5. AZATHIOPRINE. [Interacting]
     Active Substance: AZATHIOPRINE
     Dosage: 150 MG, QD
     Route: 065

REACTIONS (2)
  - Drug interaction [Unknown]
  - Hepatic enzyme abnormal [Recovered/Resolved]
